FAERS Safety Report 20057095 (Version 3)
Quarter: 2022Q2

REPORT INFORMATION
  Report Type: Report from Study
  Country: US (occurrence: US)
  Receive Date: 20211111
  Receipt Date: 20220406
  Transmission Date: 20220720
  Serious: Yes (Other)
  Sender: FDA-Public Use
  Company Number: US-ABBVIE-21K-163-4151446-00

PATIENT
  Sex: Female
  Weight: 79.450 kg

DRUGS (3)
  1. HUMIRA [Suspect]
     Active Substance: ADALIMUMAB
     Indication: Psoriasis
     Dosage: CF
     Route: 058
     Dates: start: 2019, end: 20200903
  2. HUMIRA [Suspect]
     Active Substance: ADALIMUMAB
     Dosage: CF
     Route: 058
     Dates: start: 20210527
  3. SKYRIZI [Suspect]
     Active Substance: RISANKIZUMAB-RZAA
     Indication: Product used for unknown indication
     Route: 058

REACTIONS (11)
  - Antiphospholipid syndrome [Not Recovered/Not Resolved]
  - Cerebral thrombosis [Unknown]
  - Deafness [Unknown]
  - Product storage error [Unknown]
  - Blister [Unknown]
  - Thrombosis [Unknown]
  - Transient ischaemic attack [Unknown]
  - Pneumonia [Unknown]
  - Drug hypersensitivity [Unknown]
  - Psoriasis [Unknown]
  - Therapeutic product effect decreased [Unknown]
